FAERS Safety Report 8408761-1 (Version None)
Quarter: 2012Q2

REPORT INFORMATION
  Report Type: 
  Country: None (occurrence: None)
  Receive Date: 20120604
  Receipt Date: 20120522
  Transmission Date: 20120825
  Serious: Yes (Hospitalization, Other)
  Sender: FDA-Public Use
  Company Number: DE-ELI_LILLY_AND_COMPANY-DE201202003954

PATIENT
  Age: 48 Year
  Sex: Female

DRUGS (5)
  1. LORAZEPAM [Concomitant]
     Dosage: 3 MG, QD
  2. OLANZAPINE [Suspect]
     Dosage: 10 MG, SINGLE
  3. HALOPERIDOL [Concomitant]
     Dosage: 2 MG, UNK
  4. LORAZEPAM [Concomitant]
     Dosage: 4.5 MG, QD
  5. HALOPERIDOL [Concomitant]
     Dosage: 5 MG, UNK

REACTIONS (1)
  - HYPOTHERMIA [None]
